FAERS Safety Report 4995262-6 (Version None)
Quarter: 2006Q2

REPORT INFORMATION
  Report Type: 
  Country: None (occurrence: None)
  Receive Date: 20060508
  Receipt Date: 20051206
  Transmission Date: 20061013
  Serious: Yes (Hospitalization, Disabling)
  Sender: FDA-Public Use
  Company Number: US-MERCK-0512USA00791

PATIENT
  Age: 72 Year
  Sex: Female
  Weight: 86 kg

DRUGS (1)
  1. VIOXX [Suspect]
     Indication: ARTHRITIS
     Route: 048
     Dates: start: 20010601, end: 20010601

REACTIONS (15)
  - ANAEMIA [None]
  - ATRIAL FIBRILLATION [None]
  - BLOOD GLUCOSE INCREASED [None]
  - CARDIOMEGALY [None]
  - CEREBRAL ARTERY EMBOLISM [None]
  - CEREBROVASCULAR ACCIDENT [None]
  - CEREBROVASCULAR DISORDER [None]
  - DYSPNOEA [None]
  - FATIGUE [None]
  - HYPERCHOLESTEROLAEMIA [None]
  - HYPONATRAEMIA [None]
  - PNEUMONIA [None]
  - PRURITUS [None]
  - RESPIRATORY FAILURE [None]
  - URINARY TRACT INFECTION [None]
